FAERS Safety Report 19985639 (Version 2)
Quarter: 2021Q4

REPORT INFORMATION
  Report Type: Spontaneous
  Country: US (occurrence: US)
  Receive Date: 20211021
  Receipt Date: 20211213
  Transmission Date: 20220304
  Serious: Yes (Other)
  Sender: FDA-Public Use
  Company Number: US-REGENERON PHARMACEUTICALS, INC.-2021-95836

PATIENT

DRUGS (1)
  1. EYLEA [Suspect]
     Active Substance: AFLIBERCEPT
     Indication: Diabetic retinal oedema
     Dosage: 2 MG, EVERY 6-8 WEEKS IN BOTH EYES
     Route: 031
     Dates: start: 20201028, end: 20211001

REACTIONS (2)
  - Retinal vasculitis [Not Recovered/Not Resolved]
  - Vitritis [Not Recovered/Not Resolved]

NARRATIVE: CASE EVENT DATE: 20211013
